FAERS Safety Report 4440018-6 (Version None)
Quarter: 2004Q3

REPORT INFORMATION
  Report Type: 
  Country: None (occurrence: None)
  Receive Date: 20040901
  Receipt Date: 20040818
  Transmission Date: 20050211
  Serious: Yes (Hospitalization)
  Sender: FDA-Public Use
  Company Number: 04-00483

PATIENT
  Age: 76 Year
  Sex: Male

DRUGS (6)
  1. METFORMIN HYDROCHLORIDE [Suspect]
     Dosage: 1000MG, TWICE DAILY
  2. ASPIRIN [Concomitant]
  3. CLOPIDOGREL [Concomitant]
  4. LISINOPRIL [Concomitant]
  5. NIFEDIPINE [Concomitant]
  6. METOPROLOL [Concomitant]

REACTIONS (5)
  - ANION GAP INCREASED [None]
  - AZOTAEMIA [None]
  - BLOOD BICARBONATE DECREASED [None]
  - BLOOD LACTIC ACID INCREASED [None]
  - URINARY TRACT INFECTION ENTEROCOCCAL [None]
